FAERS Safety Report 9114352 (Version 1)
Quarter: 2013Q1

REPORT INFORMATION
  Report Type: Report from Study
  Country: US (occurrence: US)
  Receive Date: 20130208
  Receipt Date: 20130208
  Transmission Date: 20140127
  Serious: Yes (Hospitalization)
  Sender: FDA-Public Use
  Company Number: US-ROCHE-1186574

PATIENT
  Age: 54 Year
  Sex: Female

DRUGS (4)
  1. PEGASYS [Suspect]
     Indication: PRODUCT USED FOR UNKNOWN INDICATION
     Route: 065
  2. RIBAVIRIN [Suspect]
     Indication: PRODUCT USED FOR UNKNOWN INDICATION
     Route: 065
  3. RIBAVIRIN [Suspect]
     Route: 065
  4. VICTRELIS [Suspect]
     Indication: PRODUCT USED FOR UNKNOWN INDICATION
     Route: 065

REACTIONS (10)
  - Local swelling [Unknown]
  - White blood cell count decreased [Unknown]
  - Blood potassium decreased [Unknown]
  - Anaemia [Unknown]
  - Local swelling [Unknown]
  - Swelling face [Unknown]
  - Malaise [Unknown]
  - Abdominal pain upper [Unknown]
  - Immunodeficiency [Unknown]
  - Candida infection [Unknown]
